FAERS Safety Report 10591213 (Version 2)
Quarter: 2014Q4

REPORT INFORMATION
  Report Type: Spontaneous
  Country: US (occurrence: US)
  Receive Date: 20141118
  Receipt Date: 20141215
  Transmission Date: 20150529
  Serious: No
  Sender: FDA-Public Use
  Company Number: US-SHIRE-US201407553

PATIENT
  Age: 9 Year
  Sex: Male
  Weight: 32.7 kg

DRUGS (6)
  1. ELAPRASE [Suspect]
     Active Substance: IDURSULFASE
     Indication: MUCOPOLYSACCHARIDOSIS II
     Dosage: 18 MG, 1X/WEEK
     Route: 041
     Dates: start: 20110701
  2. TYLENOL [Concomitant]
     Active Substance: ACETAMINOPHEN
     Indication: PAIN MANAGEMENT
     Dosage: 325 MG, AS REQ^D
     Route: 048
     Dates: start: 2011
  3. IBUPROFEN. [Concomitant]
     Active Substance: IBUPROFEN
     Dosage: 300 MG, AS REQ^D
     Route: 048
     Dates: start: 2011
  4. IBUPROFEN. [Concomitant]
     Active Substance: IBUPROFEN
     Indication: PAIN MANAGEMENT
     Dosage: 200 MG, AS REQ^D
     Route: 048
     Dates: start: 2011
  5. RISPERDAL [Concomitant]
     Active Substance: RISPERIDONE
     Indication: ABNORMAL BEHAVIOUR
     Dosage: 1 MG, 2X/DAY:BID
     Route: 048
     Dates: start: 201404
  6. BENADRYL [Concomitant]
     Active Substance: DIPHENHYDRAMINE HYDROCHLORIDE
     Indication: SLEEP DISORDER
     Dosage: 15 MG, AS REQ^D
     Route: 048
     Dates: start: 2011

REACTIONS (2)
  - Pyrexia [Recovered/Resolved]
  - Diarrhoea [Recovered/Resolved]

NARRATIVE: CASE EVENT DATE: 201410
